FAERS Safety Report 5562346-3 (Version None)
Quarter: 2007Q4

REPORT INFORMATION
  Report Type: 
  Country: None (occurrence: None)
  Receive Date: 20071215
  Receipt Date: 20070802
  Transmission Date: 20080405
  Serious: No
  Sender: FDA-Public Use
  Company Number: US-AMGEN-US236922

PATIENT
  Sex: Female

DRUGS (2)
  1. ARANESP [Suspect]
     Indication: RENAL FAILURE CHRONIC
     Route: 058
     Dates: start: 20070601
  2. INSULIN [Concomitant]
     Route: 065

REACTIONS (1)
  - INJECTION SITE REACTION [None]
